FAERS Safety Report 7402319-9 (Version None)
Quarter: 2011Q2

REPORT INFORMATION
  Report Type: 
  Country: None (occurrence: None)
  Receive Date: 20110408
  Receipt Date: 20110328
  Transmission Date: 20111010
  Serious: Yes (Other)
  Sender: FDA-Public Use
  Company Number: AR-SANOFI-AVENTIS-2011SA018418

PATIENT

DRUGS (12)
  1. ACENOCOUMAROL [Concomitant]
     Dosage: 14 MG WEEKLY
  2. ESPIRONOLACTONA [Concomitant]
  3. CLOPIDOGREL [Concomitant]
  4. DRONEDARONE [Suspect]
     Indication: ATRIAL FIBRILLATION
     Route: 048
     Dates: end: 20110324
  5. FUROSEMIDE [Concomitant]
  6. DIGOXIN [Concomitant]
  7. LEVOTHYROXINE [Concomitant]
  8. RANITIDINA [Concomitant]
  9. SIMVASTATIN [Concomitant]
  10. INSULIN [Concomitant]
  11. CARVEDILOL [Concomitant]
  12. ASPIRIN [Concomitant]

REACTIONS (1)
  - RENAL FAILURE ACUTE [None]
